FAERS Safety Report 24303970 (Version 2)
Quarter: 2024Q3

REPORT INFORMATION
  Report Type: Report from Study
  Country: IT (occurrence: IT)
  Receive Date: 20240910
  Receipt Date: 20240919
  Transmission Date: 20241016
  Serious: Yes (Death)
  Sender: ROCHE
  Company Number: IT-BoehringerIngelheim-2024-BI-049818

PATIENT

DRUGS (2)
  1. ALTEPLASE [Suspect]
     Active Substance: ALTEPLASE
     Indication: Prosthetic cardiac valve thrombosis
     Dosage: 25-HOUR INFUSION OF 25 MG OF ADMINISTERED AS THE INITIAL DOSE. IN CASE OF FAILURE, A REPEAT 6-HOUR I
     Route: 065
  2. Unfractionated Heparin (UFH) [Concomitant]
     Indication: Product used for unknown indication

REACTIONS (3)
  - Haemorrhage intracranial [Fatal]
  - Off label use [Unknown]
  - Haemorrhage [Unknown]
